FAERS Safety Report 4688868-5 (Version None)
Quarter: 2005Q2

REPORT INFORMATION
  Report Type: 
  Country: None (occurrence: None)
  Receive Date: 20050603
  Receipt Date: 20050524
  Transmission Date: 20051028
  Serious: Yes (Hospitalization)
  Sender: FDA-Public Use
  Company Number: GAM-030-05-USA

PATIENT
  Age: 13 Year
  Sex: Male
  Weight: 71.6683 kg

DRUGS (3)
  1. OCTAGAM [Suspect]
     Indication: CHRONIC SINUSITIS
     Dosage: 30 GM OVER 4 HOURS; IV
     Route: 042
     Dates: start: 20050513
  2. OCTAGAM [Suspect]
     Indication: HYPOGAMMAGLOBULINAEMIA
     Dosage: 30 GM OVER 4 HOURS; IV
     Route: 042
     Dates: start: 20050513
  3. ORAL ANTIBIOTICS [Concomitant]

REACTIONS (4)
  - HEADACHE [None]
  - MENINGITIS BACTERIAL [None]
  - MUSCLE RIGIDITY [None]
  - PYREXIA [None]
